FAERS Safety Report 8011746-0 (Version None)
Quarter: 2011Q4

REPORT INFORMATION
  Report Type: 
  Country: None (occurrence: None)
  Receive Date: 20111228
  Receipt Date: 20111220
  Transmission Date: 20120403
  Serious: Yes (Other)
  Sender: FDA-Public Use
  Company Number: US-PFIZER INC-2011304773

PATIENT
  Sex: Female

DRUGS (1)
  1. PROTONIX [Suspect]
     Dosage: UNK

REACTIONS (1)
  - ANAPHYLACTIC REACTION [None]
